FAERS Safety Report 10139246 (Version 3)
Quarter: 2014Q2

REPORT INFORMATION
  Report Type: Spontaneous
  Country: AT (occurrence: AT)
  Receive Date: 20140429
  Receipt Date: 20140602
  Transmission Date: 20141212
  Serious: Yes (Hospitalization)
  Sender: FDA-Public Use
  Company Number: AT-ALLERGAN-1407745US

PATIENT
  Age: 46 Year
  Sex: Female

DRUGS (3)
  1. BOTOX [Suspect]
     Indication: SKIN WRINKLING
     Dosage: 60 UNITS, SINGLE
     Route: 030
     Dates: start: 20140314, end: 20140314
  2. BOTOX [Suspect]
     Indication: SKIN WRINKLING
  3. BOTOX [Suspect]
     Indication: SKIN WRINKLING

REACTIONS (6)
  - Tachycardia [Recovering/Resolving]
  - Dysphonia [Recovering/Resolving]
  - Musculoskeletal stiffness [Recovering/Resolving]
  - Dyspnoea [Recovering/Resolving]
  - Chest discomfort [Recovering/Resolving]
  - Dysphagia [Recovering/Resolving]
